FAERS Safety Report 10459493 (Version 1)
Quarter: 2014Q3

REPORT INFORMATION
  Report Type: Report from Study
  Country: US (occurrence: US)
  Receive Date: 20140917
  Receipt Date: 20140917
  Transmission Date: 20150326
  Serious: Yes (Death, Hospitalization)
  Sender: FDA-Public Use
  Company Number: PHHO2014US012389

PATIENT
  Sex: Female
  Weight: 44.5 kg

DRUGS (1)
  1. AFINITOR [Suspect]
     Active Substance: EVEROLIMUS
     Indication: PLEURAL MESOTHELIOMA MALIGNANT
     Dosage: 10 MG, DAILY
     Route: 048
     Dates: start: 20110727, end: 20110828

REACTIONS (3)
  - Dyspnoea [Fatal]
  - Pneumonitis [Not Recovered/Not Resolved]
  - Lung infection [Not Recovered/Not Resolved]

NARRATIVE: CASE EVENT DATE: 20110828
